FAERS Safety Report 22227406 (Version 2)
Quarter: 2023Q2

REPORT INFORMATION
  Report Type: Spontaneous
  Country: US (occurrence: US)
  Receive Date: 20230419
  Receipt Date: 20230424
  Transmission Date: 20230721
  Serious: No
  Sender: FDA-Public Use
  Company Number: US-ABBVIE-4731819

PATIENT
  Sex: Female
  Weight: 61.234 kg

DRUGS (2)
  1. HUMIRA [Suspect]
     Active Substance: ADALIMUMAB
     Indication: Uveitis
     Route: 058
     Dates: start: 202211
  2. DOXYCYCLINE [Concomitant]
     Active Substance: DOXYCYCLINE
     Indication: Acne

REACTIONS (8)
  - Drug level abnormal [Unknown]
  - Drug specific antibody present [Unknown]
  - Uveitis [Unknown]
  - Nasopharyngitis [Recovering/Resolving]
  - Eye irritation [Recovering/Resolving]
  - Device issue [Unknown]
  - Viral infection [Recovering/Resolving]
  - Dizziness [Recovering/Resolving]

NARRATIVE: CASE EVENT DATE: 20220101
